FAERS Safety Report 4435011-3 (Version None)
Quarter: 2004Q3

REPORT INFORMATION
  Report Type: 
  Country: None (occurrence: None)
  Receive Date: 20040827
  Receipt Date: 20040714
  Transmission Date: 20050211
  Serious: Yes (Hospitalization, Other)
  Sender: FDA-Public Use
  Company Number: PHFR2004GB02854

PATIENT
  Age: 41 Year
  Sex: Female

DRUGS (3)
  1. LAMISIL [Suspect]
     Indication: ONYCHOMYCOSIS
     Route: 065
  2. ALBUTEROL SULFATE [Concomitant]
     Indication: ASTHMA
     Dates: start: 20040625
  3. BECOTIDE [Concomitant]
     Indication: ASTHMA
     Dates: start: 20040625

REACTIONS (11)
  - ARTHRALGIA [None]
  - ERYTHEMA [None]
  - FLUID RETENTION [None]
  - JOINT STIFFNESS [None]
  - MOBILITY DECREASED [None]
  - MYALGIA [None]
  - OEDEMA [None]
  - PAIN [None]
  - RASH GENERALISED [None]
  - SWELLING [None]
  - TYPE I HYPERSENSITIVITY [None]
